FAERS Safety Report 6346980-9 (Version None)
Quarter: 2009Q3

REPORT INFORMATION
  Report Type: 
  Country: None (occurrence: None)
  Receive Date: 20090910
  Receipt Date: 20080619
  Transmission Date: 20100115
  Serious: Yes (Other)
  Sender: FDA-Public Use
  Company Number: US-ASTRAZENECA-2007UW26265

PATIENT
  Age: 10434 Day
  Sex: Male
  Weight: 139.3 kg

DRUGS (10)
  1. SEROQUEL [Suspect]
     Route: 048
     Dates: start: 20050426, end: 20061005
  2. SEROQUEL [Suspect]
     Route: 048
     Dates: end: 20060101
  3. PAROXETINE HCL [Concomitant]
     Dates: start: 20050426
  4. TRAZODONE [Concomitant]
     Dates: start: 20050426
  5. ATENOLOL [Concomitant]
     Dates: start: 20050525
  6. LANTUS [Concomitant]
     Dosage: 20 UNITS DAILY
     Dates: start: 20050426
  7. PRILOSEC [Concomitant]
     Dates: start: 20040426
  8. PROZAC [Concomitant]
     Dosage: 20 MGAM, 20 MG PM
     Dates: start: 20050525
  9. ATIVAN [Concomitant]
     Dates: start: 20050525
  10. PERCOCET [Concomitant]
     Dosage: 7.5/325
     Dates: start: 20050525

REACTIONS (4)
  - DIABETES MELLITUS [None]
  - DIABETIC FOOT [None]
  - DIABETIC NEUROPATHY [None]
  - INSULIN-REQUIRING TYPE 2 DIABETES MELLITUS [None]
